FAERS Safety Report 8817718 (Version 1)
Quarter: 2012Q4

REPORT INFORMATION
  Report Type: 
  Country: US (occurrence: US)
  Receive Date: 20121001
  Receipt Date: 20121001
  Transmission Date: 20130627
  Serious: Yes (Other)
  Sender: FDA-Public Use
  Company Number: US-PFIZER INC-2012237627

PATIENT
  Age: 72 Year
  Sex: Female
  Weight: 43.54 kg

DRUGS (2)
  1. XALATAN [Suspect]
     Indication: GLAUCOMA
     Dosage: 1 Gtt, in both eyes
     Route: 047
     Dates: start: 2002, end: 2005
  2. OCUVITE [Concomitant]
     Indication: SUPPLEMENTATION THERAPY
     Dosage: UNK

REACTIONS (1)
  - Glaucoma [Not Recovered/Not Resolved]
